FAERS Safety Report 9776978 (Version 1)
Quarter: 2013Q4

REPORT INFORMATION
  Report Type: Report from Study
  Country: GB (occurrence: GB)
  Receive Date: 20131221
  Receipt Date: 20131221
  Transmission Date: 20140711
  Serious: Yes (Hospitalization)
  Sender: FDA-Public Use
  Company Number: GB-ROCHE-1319288

PATIENT
  Sex: Female

DRUGS (1)
  1. RITUXIMAB [Suspect]
     Indication: RHEUMATOID ARTHRITIS
     Route: 065
     Dates: start: 20090522

REACTIONS (5)
  - Biliary sepsis [Unknown]
  - Device occlusion [Unknown]
  - Vomiting [Unknown]
  - Pyrexia [Unknown]
  - Chills [Unknown]
